FAERS Safety Report 24267440 (Version 1)
Quarter: 2024Q3

REPORT INFORMATION
  Report Type: Spontaneous
  Country: US (occurrence: US)
  Receive Date: 20240830
  Receipt Date: 20240830
  Transmission Date: 20241017
  Serious: Yes (Hospitalization)
  Sender: TEVA
  Company Number: US-TEVA-VS-3235329

PATIENT
  Age: 42 Year
  Sex: Male

DRUGS (1)
  1. UZEDY [Suspect]
     Active Substance: RISPERIDONE
     Indication: Schizophrenia
     Dosage: DOSE: 125/0.35 MG/ML
     Route: 058

REACTIONS (2)
  - Behaviour disorder [Not Recovered/Not Resolved]
  - Drug ineffective [Unknown]
